FAERS Safety Report 15929781 (Version 6)
Quarter: 2020Q3

REPORT INFORMATION
  Report Type: Spontaneous
  Country: CA (occurrence: CA)
  Receive Date: 20190206
  Receipt Date: 20200722
  Transmission Date: 20201102
  Serious: Yes (Hospitalization, Other)
  Sender: FDA-Public Use
  Company Number: CA-ASCEND THERAPEUTICS-2062251

PATIENT
  Age: 52 Year
  Sex: Female

DRUGS (14)
  1. DEHYDROEPIANDROSTERONE (PRASTERONE)?PRODUCT USED FOR UNKNOWN INDICATIO [Suspect]
     Active Substance: PRASTERONE
     Route: 067
  2. PROGESTERONE. [Suspect]
     Active Substance: PROGESTERONE
     Route: 067
  3. ESTROGEL [Suspect]
     Active Substance: ESTRADIOL
  4. BUDESONIDE. [Concomitant]
     Active Substance: BUDESONIDE
  5. PRASTERONE (PRASTERONE)?INDICATED USE: MENOPAUSE [Suspect]
     Active Substance: PRASTERONE
     Route: 067
  6. THYROID [Suspect]
     Active Substance: LEVOTHYROXINE\LIOTHYRONINE
  7. PROMETRIUM [Suspect]
     Active Substance: PROGESTERONE
  8. CLARITIN [Concomitant]
     Active Substance: LORATADINE
     Route: 048
  9. INTRAROSA [Suspect]
     Active Substance: PRASTERONE
     Route: 065
  10. ESTROGEL [Suspect]
     Active Substance: ESTRADIOL
     Indication: PRODUCT USED FOR UNKNOWN INDICATION
  11. CRINONE [Suspect]
     Active Substance: PROGESTERONE
  12. CLARITIN?D (PSUEDOEPHEDRINE SULFATE, LORATADINE) [Concomitant]
     Route: 048
  13. LORATADINE. [Suspect]
     Active Substance: LORATADINE
     Route: 048
  14. GLICLAZIDE [Concomitant]
     Active Substance: GLICLAZIDE

REACTIONS (10)
  - Rash [Unknown]
  - Swelling face [Unknown]
  - Head discomfort [Unknown]
  - Periorbital oedema [Unknown]
  - Feeling hot [Unknown]
  - Cellulitis [Unknown]
  - Tinnitus [Unknown]
  - Photosensitivity reaction [Unknown]
  - Butterfly rash [Unknown]
  - Product use in unapproved indication [None]
